FAERS Safety Report 7216458-9 (Version None)
Quarter: 2011Q1

REPORT INFORMATION
  Report Type: 
  Country: None (occurrence: None)
  Receive Date: 20110107
  Receipt Date: 20110105
  Transmission Date: 20110831
  Serious: Yes (Other)
  Sender: FDA-Public Use
  Company Number: US-AMGEN-USASP2010010012

PATIENT

DRUGS (7)
  1. ENBREL [Suspect]
     Indication: PSORIATIC ARTHROPATHY
  2. ENBREL [Suspect]
     Indication: PSORIASIS
     Dosage: 50 MG, 2 TIMES/WK
     Route: 058
     Dates: start: 20100818, end: 20101110
  3. CLOBETASOL PROPIONATE [Concomitant]
  4. DOVONEX [Concomitant]
  5. BETAMETHASONE [Concomitant]
  6. DERMAZINC [Concomitant]
  7. METHOTREXATE [Concomitant]

REACTIONS (4)
  - PSORIASIS [None]
  - COLLAPSE OF LUNG [None]
  - MONONEUROPATHY [None]
  - HEADACHE [None]
